FAERS Safety Report 8356380-8 (Version None)
Quarter: 2012Q2

REPORT INFORMATION
  Report Type: 
  Country: None (occurrence: None)
  Receive Date: 20120514
  Receipt Date: 20120509
  Transmission Date: 20120825
  Serious: Yes (Other)
  Sender: FDA-Public Use
  Company Number: US-PFIZER INC-2012113357

PATIENT
  Sex: Male
  Weight: 79.365 kg

DRUGS (5)
  1. NORVASC [Suspect]
     Indication: HYPERTENSION
     Dosage: UNK
     Dates: start: 20110901, end: 20120306
  2. XANAX [Suspect]
     Indication: TINNITUS
     Dosage: UNK
     Dates: start: 20111201, end: 20120306
  3. TAMSULOSIN HYDROCHLORIDE [Suspect]
     Indication: PROSTATIC SPECIFIC ANTIGEN INCREASED
  4. TAMSULOSIN HYDROCHLORIDE [Suspect]
     Indication: BENIGN PROSTATIC HYPERPLASIA
     Dosage: UNK
     Dates: start: 20110101, end: 20120306
  5. ANDROGEL [Suspect]
     Indication: BLOOD TESTOSTERONE DECREASED
     Dosage: 5 G, UNK
     Dates: start: 20090101, end: 20120319

REACTIONS (3)
  - ARTHRALGIA [None]
  - PARAESTHESIA [None]
  - SKIN BURNING SENSATION [None]
